FAERS Safety Report 23027506 (Version 1)
Quarter: 2023Q4

REPORT INFORMATION
  Report Type: Other
  Country: None (occurrence: US)
  Receive Date: 20231004
  Receipt Date: 20231004
  Transmission Date: 20240110
  Serious: Yes (Life-Threatening, Hospitalization)
  Sender: FDA-Public Use
  Company Number: US-B.Braun Medical Inc.-2146652

PATIENT
  Age: 14 Year
  Sex: Male

DRUGS (8)
  1. ACETAMINOPHEN [Suspect]
     Active Substance: ACETAMINOPHEN
  2. NORFENTANYL [Suspect]
     Active Substance: NORFENTANYL
  3. BUTYRFENTANYL [Suspect]
     Active Substance: BUTYRFENTANYL
  4. COCAINE [Suspect]
     Active Substance: COCAINE
  5. UNSPECIFIED INGREDIENT [Suspect]
     Active Substance: UNSPECIFIED INGREDIENT
  6. VENLAFAXINE [Suspect]
     Active Substance: VENLAFAXINE HYDROCHLORIDE
  7. NALTREXONE [Suspect]
     Active Substance: NALTREXONE
  8. BUPIVACAINE [Suspect]
     Active Substance: BUPIVACAINE

REACTIONS (3)
  - Acute kidney injury [None]
  - Cardiotoxicity [None]
  - Drug abuse [None]
